FAERS Safety Report 8484182 (Version 2)
Quarter: 2012Q4

REPORT INFORMATION
  Report Type: 
  Country: DE (occurrence: DE)
  Receive Date: 20120330
  Receipt Date: 20121001
  Transmission Date: 20130627
  Serious: Yes (Other)
  Sender: FDA-Public Use
  Company Number: DE-JNJFOC-20120311283

PATIENT
  Age: 55 Year
  Sex: Female

DRUGS (1)
  1. SIMPONI [Suspect]
     Indication: SARCOIDOSIS
     Route: 058

REACTIONS (4)
  - Ventricular extrasystoles [Unknown]
  - Ejection fraction decreased [Unknown]
  - Syncope [Unknown]
  - Off label use [Unknown]
